FAERS Safety Report 6986367-9 (Version None)
Quarter: 2010Q3

REPORT INFORMATION
  Report Type: 
  Country: None (occurrence: None)
  Receive Date: 20100910
  Receipt Date: 20100902
  Transmission Date: 20110219
  Serious: Yes (Other)
  Sender: FDA-Public Use
  Company Number: 573869

PATIENT
  Age: 45 Year
  Sex: 0

DRUGS (3)
  1. DEXMEDETOMIDINE HYDROCHLORIDE [Suspect]
     Indication: EXTUBATION
     Dosage: INTRAVENOUS
     Route: 042
     Dates: start: 20100416, end: 20100417
  2. OLANZAPINE [Suspect]
     Indication: AGITATION
     Dosage: 10 MG MILLIGRAM(S),  2 DAY, ORAL
     Route: 048
     Dates: start: 20100415
  3. LITHIUM CARBONATE [Concomitant]

REACTIONS (2)
  - DRUG INTERACTION [None]
  - PYREXIA [None]
